FAERS Safety Report 10469452 (Version 3)
Quarter: 2014Q4

REPORT INFORMATION
  Report Type: Spontaneous
  Country: US (occurrence: None)
  Receive Date: 20140919
  Receipt Date: 20141125
  Transmission Date: 20150528
  Serious: Yes (Other)
  Sender: FDA-Public Use
  Company Number: US-001209

PATIENT
  Sex: Male
  Weight: 71.22 kg

DRUGS (16)
  1. BYSTOLIC [Concomitant]
     Active Substance: NEBIVOLOL HYDROCHLORIDE
  2. GAS RELIEF [Concomitant]
     Active Substance: DIMETHICONE
  3. ASPIRIN. [Concomitant]
     Active Substance: ASPIRIN
  4. OMEPRAZOLE MAGNESIUM. [Concomitant]
     Active Substance: OMEPRAZOLE MAGNESIUM
  5. SOLUTIONS FOR PARENTERAL NUTRITION [Concomitant]
     Active Substance: AMINO ACIDS\DEXTROSE\ELECTROLYTES NOS
  6. CITALOPRAM HYDROBROMIDE. [Concomitant]
     Active Substance: CITALOPRAM HYDROBROMIDE
  7. THERAPEUTIC M [Concomitant]
  8. VITAMIN D [Concomitant]
     Active Substance: CHOLECALCIFEROL
  9. NICOTINE. [Concomitant]
     Active Substance: NICOTINE
  10. LOPERAMIDE HCL [Concomitant]
     Active Substance: LOPERAMIDE HYDROCHLORIDE
  11. PROTEIN SUPPLEMENTS [Concomitant]
     Active Substance: PROTEIN
  12. PREVALITE [Concomitant]
     Active Substance: CHOLESTYRAMINE
  13. CALCIUM 5500 + D 500 [Concomitant]
  14. GATTEX [Suspect]
     Active Substance: TEDUGLUTIDE\WATER
     Indication: SHORT-BOWEL SYNDROME
     Dosage: (DF SUBCUTANEOUS)
     Dates: end: 20140828
  15. ONDANSETRON HCL [Concomitant]
     Active Substance: ONDANSETRON HYDROCHLORIDE
  16. DIPHENATOL [Concomitant]

REACTIONS (17)
  - Vomiting [None]
  - Pulmonary oedema [None]
  - Speech disorder [None]
  - Cardiac failure congestive [None]
  - Hypoxia [None]
  - Hyperlipidaemia [None]
  - Pleural effusion [None]
  - Emphysema [None]
  - Dyspnoea [None]
  - Flatulence [None]
  - Abdominal pain [None]
  - Nausea [None]
  - Peripheral swelling [None]
  - Retching [None]
  - Acute respiratory failure [None]
  - Chronic obstructive pulmonary disease [None]
  - Pulmonary hypertension [None]

NARRATIVE: CASE EVENT DATE: 2014
